FAERS Safety Report 16300716 (Version 2)
Quarter: 2019Q2

REPORT INFORMATION
  Report Type: Spontaneous
  Country: ES (occurrence: ES)
  Receive Date: 20190510
  Receipt Date: 20190619
  Transmission Date: 20190711
  Serious: Yes (Death, Hospitalization, Other)
  Sender: FDA-Public Use
  Company Number: ES-PFIZER INC-2019195683

PATIENT
  Age: 90 Year
  Sex: Male

DRUGS (3)
  1. ATORVASTATIN CALCIUM. [Suspect]
     Active Substance: ATORVASTATIN CALCIUM
     Indication: CEREBROVASCULAR ACCIDENT
  2. ATORVASTATIN CALCIUM. [Suspect]
     Active Substance: ATORVASTATIN CALCIUM
     Indication: ISCHAEMIC STROKE
     Dosage: 80 MG, 1X/DAY
     Route: 048
     Dates: start: 20180109, end: 20180412
  3. VENLAFAXINE HCL [Suspect]
     Active Substance: VENLAFAXINE HYDROCHLORIDE
     Indication: DEPRESSION
     Dosage: 18.75 MG, 1X/DAY (37.5 MG, DAILY (1/2-0-0))
     Route: 048
     Dates: start: 20180409, end: 20180412

REACTIONS (2)
  - Hepatitis acute [Recovering/Resolving]
  - Renal failure [Fatal]

NARRATIVE: CASE EVENT DATE: 20180412
